FAERS Safety Report 12996794 (Version 2)
Quarter: 2017Q1

REPORT INFORMATION
  Report Type: Spontaneous
  Country: PL (occurrence: PL)
  Receive Date: 20161205
  Receipt Date: 20170119
  Transmission Date: 20170428
  Serious: Yes (Hospitalization, Other)
  Sender: FDA-Public Use
  Company Number: PL-ROCHE-1860762

PATIENT
  Sex: Male

DRUGS (5)
  1. FLUDARABINE [Suspect]
     Active Substance: FLUDARABINE PHOSPHATE
     Indication: CHRONIC LYMPHOCYTIC LEUKAEMIA
     Route: 042
     Dates: start: 20160708
  2. MABTHERA [Suspect]
     Active Substance: RITUXIMAB
     Indication: CHRONIC LYMPHOCYTIC LEUKAEMIA
     Route: 042
     Dates: start: 20160708
  3. CYCLOPHOSPHAMIDE. [Suspect]
     Active Substance: CYCLOPHOSPHAMIDE
     Indication: CHRONIC LYMPHOCYTIC LEUKAEMIA
     Route: 042
     Dates: start: 20160708
  4. BISEPTOL [Concomitant]
     Active Substance: SULFAMETHOXAZOLE\TRIMETHOPRIM
  5. ACICLOVIR [Concomitant]
     Active Substance: ACYCLOVIR

REACTIONS (29)
  - Gastrointestinal obstruction [Unknown]
  - Pseudomonas test positive [Unknown]
  - Spleen disorder [Unknown]
  - Appendicitis [Recovered/Resolved]
  - Chronic lymphocytic leukaemia [Unknown]
  - Lung disorder [Unknown]
  - Pleural effusion [Unknown]
  - C-reactive protein increased [Unknown]
  - General physical health deterioration [Unknown]
  - Klebsiella test positive [Unknown]
  - Splenomegaly [Unknown]
  - Histiocytosis haematophagic [Unknown]
  - Pneumonitis [Unknown]
  - Subileus [Unknown]
  - Inflammation [Unknown]
  - Dyspnoea at rest [Unknown]
  - Lung abscess [Unknown]
  - Lung infiltration [Unknown]
  - Bone marrow necrosis [Unknown]
  - Enterococcus test positive [Unknown]
  - Bacterial test positive [Unknown]
  - Headache [Unknown]
  - Respiratory failure [Unknown]
  - Ear disorder [Unknown]
  - Osteonecrosis [Unknown]
  - Pyrexia [Recovered/Resolved]
  - Breath sounds abnormal [Unknown]
  - Rhinorrhoea [Unknown]
  - Bone marrow disorder [Unknown]
